FAERS Safety Report 8861522 (Version 1)
Quarter: 2012Q4

REPORT INFORMATION
  Report Type: Spontaneous
  Country: US (occurrence: None)
  Receive Date: 20121025
  Receipt Date: 20121025
  Transmission Date: 20130627
  Serious: Yes (Hospitalization, Other)
  Sender: FDA-Public Use
  Company Number: None

PATIENT
  Age: 46 Year
  Sex: Female

DRUGS (1)
  1. LEVAQUIN [Suspect]
     Route: 042
     Dates: start: 20120501, end: 20120501

REACTIONS (3)
  - Chest pain [None]
  - Chest discomfort [None]
  - Hypotension [None]
